FAERS Safety Report 13494857 (Version 1)
Quarter: 2017Q2

REPORT INFORMATION
  Report Type: Spontaneous
  Country: US (occurrence: US)
  Receive Date: 20170428
  Receipt Date: 20170428
  Transmission Date: 20170830
  Serious: No
  Sender: FDA-Public Use
  Company Number: US-PFIZER INC-2017183856

PATIENT
  Age: 55 Year
  Sex: Female

DRUGS (1)
  1. IBRANCE [Suspect]
     Active Substance: PALBOCICLIB
     Indication: BREAST CANCER
     Dosage: 125 MG, CYCLIC (21 DAYS ON, 7 OFF)
     Route: 048
     Dates: start: 20160621

REACTIONS (4)
  - Fatigue [Unknown]
  - Alopecia [Unknown]
  - Dizziness [Unknown]
  - Sleep phase rhythm disturbance [Unknown]

NARRATIVE: CASE EVENT DATE: 20170424
